FAERS Safety Report 8869852 (Version 1)
Quarter: 2012Q4

REPORT INFORMATION
  Report Type: 
  Country: US (occurrence: US)
  Receive Date: 20121028
  Receipt Date: 20121028
  Transmission Date: 20130627
  Serious: Yes (Other)
  Sender: FDA-Public Use
  Company Number: US-JNJFOC-20121009282

PATIENT
  Age: 69 Year
  Sex: Male

DRUGS (1)
  1. LEVAQUIN [Suspect]
     Indication: UPPER RESPIRATORY TRACT INFECTION
     Route: 065
     Dates: start: 201202, end: 2012

REACTIONS (3)
  - Myelopathy [Not Recovered/Not Resolved]
  - Psychotic disorder [Not Recovered/Not Resolved]
  - Neuropathy peripheral [Not Recovered/Not Resolved]
